FAERS Safety Report 7720537-7 (Version None)
Quarter: 2011Q3

REPORT INFORMATION
  Report Type: 
  Country: None (occurrence: None)
  Receive Date: 20110831
  Receipt Date: 20110831
  Transmission Date: 20111222
  Serious: Yes (Hospitalization)
  Sender: FDA-Public Use
  Company Number: None

PATIENT
  Sex: Female
  Weight: 86.182 kg

DRUGS (1)
  1. CETIRIZINE HCL [Suspect]
     Indication: MULTIPLE ALLERGIES
     Dosage: 10MG
     Route: 048

REACTIONS (6)
  - DISORIENTATION [None]
  - MIGRAINE [None]
  - MALAISE [None]
  - DRUG WITHDRAWAL SYNDROME [None]
  - DIZZINESS [None]
  - NAUSEA [None]
